FAERS Safety Report 5311715-5 (Version None)
Quarter: 2007Q2

REPORT INFORMATION
  Report Type: 
  Country: None (occurrence: None)
  Receive Date: 20070426
  Receipt Date: 20070426
  Transmission Date: 20071010
  Serious: Yes (Other)
  Sender: FDA-Public Use
  Company Number: None

PATIENT
  Age: 74 Year
  Sex: Male

DRUGS (1)
  1. GENERIC ORAL PHOSPHOSODA [Suspect]
     Indication: COLONOSCOPY
     Dosage: 45 ML X1 PO
     Route: 048
     Dates: start: 20000101, end: 20000101

REACTIONS (2)
  - MALAISE [None]
  - RENAL FAILURE CHRONIC [None]
